FAERS Safety Report 16993273 (Version 1)
Quarter: 2019Q4

REPORT INFORMATION
  Report Type: Report from Study
  Country: US (occurrence: US)
  Receive Date: 20191105
  Receipt Date: 20191105
  Transmission Date: 20200122
  Serious: No
  Sender: FDA-Public Use
  Company Number: PHHY2015US103244

PATIENT
  Age: 44 Year
  Sex: Female

DRUGS (6)
  1. SOLU-MEDROL [Concomitant]
     Active Substance: METHYLPREDNISOLONE SODIUM SUCCINATE
     Indication: MULTIPLE SCLEROSIS
     Dosage: 500 MG, UNK
     Route: 048
     Dates: start: 20150210, end: 20150512
  2. MENOSENSE [Concomitant]
     Indication: HOT FLUSH
     Dosage: 2 DF, BID
     Route: 065
     Dates: start: 20140729
  3. GILENYA [Suspect]
     Active Substance: FINGOLIMOD HYDROCHLORIDE
     Indication: MULTIPLE SCLEROSIS
     Dosage: UNK UNK, QD
     Route: 048
  4. FLUCONAZOLE. [Concomitant]
     Active Substance: FLUCONAZOLE
     Indication: FUNGAL INFECTION
     Dosage: 2 DF, QD
     Route: 065
     Dates: start: 20150216, end: 20150216
  5. LIDODERM [Concomitant]
     Active Substance: LIDOCAINE
     Indication: POST HERPETIC NEURALGIA
     Dosage: UNK
     Route: 065
     Dates: start: 20150420
  6. MENOSENSE [Concomitant]
     Indication: NIGHT SWEATS

REACTIONS (2)
  - Tooth abscess [Recovered/Resolved]
  - Neuralgia [Recovered/Resolved]

NARRATIVE: CASE EVENT DATE: 20150209
